FAERS Safety Report 10012267 (Version 1)
Quarter: 2014Q1

REPORT INFORMATION
  Report Type: Spontaneous
  Country: US (occurrence: None)
  Receive Date: 20140313
  Receipt Date: 20140313
  Transmission Date: 20141002
  Serious: Yes (Disabling)
  Sender: FDA-Public Use
  Company Number: None

PATIENT
  Age: 57 Year
  Sex: Female

DRUGS (1)
  1. LISINOPRIL 5MG [Suspect]
     Indication: HYPERTENSION
     Dosage: 3-4 MONTHS,  1 PILLS ONCE DAILY TAKEN BY MOUTH
     Route: 048

REACTIONS (4)
  - Cough [None]
  - Vomiting [None]
  - Quality of life decreased [None]
  - Urinary incontinence [None]
